FAERS Safety Report 7670641 (Version 5)
Quarter: 2014Q2

REPORT INFORMATION
  Report Type: Spontaneous
  Country: US (occurrence: US)
  Receive Date: 20101116
  Receipt Date: 20140405
  Transmission Date: 20141212
  Serious: Yes (Other)
  Sender: FDA-Public Use
  Company Number: US-ROCHE-719241

PATIENT
  Age: 30 Year
  Sex: Male
  Weight: 70.3 kg

DRUGS (1)
  1. ACCUTANE [Suspect]
     Indication: ACNE
     Route: 048
     Dates: start: 20020201, end: 20020717

REACTIONS (16)
  - Crohn^s disease [Recovering/Resolving]
  - Gastrointestinal injury [Unknown]
  - Emotional distress [Unknown]
  - Colitis [Unknown]
  - Anal fissure [Recovered/Resolved]
  - Haemorrhoids [Unknown]
  - Anal fistula [Recovered/Resolved]
  - Irritable bowel syndrome [Unknown]
  - Arthralgia [Unknown]
  - Tendonitis [Unknown]
  - Anaemia [Unknown]
  - Dry skin [Unknown]
  - Blood cholesterol increased [Recovered/Resolved]
  - Lip dry [Unknown]
  - Nasal dryness [Recovered/Resolved]
  - Dry skin [Unknown]
